FAERS Safety Report 24098759 (Version 1)
Quarter: 2024Q3

REPORT INFORMATION
  Report Type: Spontaneous
  Country: SE (occurrence: SE)
  Receive Date: 20240716
  Receipt Date: 20240716
  Transmission Date: 20241017
  Serious: Yes (Hospitalization)
  Sender: TEVA
  Company Number: None

PATIENT
  Age: 79 Year
  Sex: Male

DRUGS (21)
  1. CARBOPLATIN [Suspect]
     Active Substance: CARBOPLATIN
     Indication: Lung adenocarcinoma stage III
     Dosage: 540 MG COURSE 2^
     Route: 065
     Dates: start: 20231102
  2. CARBOPLATIN [Suspect]
     Active Substance: CARBOPLATIN
     Indication: Lung adenocarcinoma stage III
     Dosage: 540 MG COURSE 1^
     Route: 065
     Dates: start: 20231006
  3. METFORMIN [Concomitant]
     Active Substance: METFORMIN HYDROCHLORIDE
     Indication: Product used for unknown indication
     Route: 048
  4. EZETIMIBE [Concomitant]
     Active Substance: EZETIMIBE
     Indication: Product used for unknown indication
     Route: 048
  5. BUPRENORPHINE [Concomitant]
     Active Substance: BUPRENORPHINE
     Indication: Product used for unknown indication
     Route: 003
  6. SIMVASTATIN [Concomitant]
     Active Substance: SIMVASTATIN
     Indication: Product used for unknown indication
     Route: 048
  7. Furix [Concomitant]
     Indication: Product used for unknown indication
     Route: 048
  8. ONDANSETRON [Concomitant]
     Active Substance: ONDANSETRON
     Indication: Product used for unknown indication
     Dosage: TIME INTERVAL: TOTAL
     Route: 042
  9. ONDANSETRON [Concomitant]
     Active Substance: ONDANSETRON
     Indication: Product used for unknown indication
     Dosage: TIME INTERVAL: AS NECESSARY
     Route: 048
  10. PEMETREXED [Concomitant]
     Active Substance: PEMETREXED
     Indication: Product used for unknown indication
     Dosage: TIME INTERVAL: TOTAL
     Route: 042
     Dates: start: 20231206
  11. VINORELBINE [Concomitant]
     Active Substance: VINORELBINE TARTRATE
     Indication: Product used for unknown indication
     Dosage: 80 MG, 1 CAPSULE AFTER THE COURSE AND 2 CAPSULES 20 MG.
     Route: 048
  12. CANDESARTAN CILEXETIL\HYDROCHLOROTHIAZIDE [Concomitant]
     Active Substance: CANDESARTAN CILEXETIL\HYDROCHLOROTHIAZIDE
     Indication: Product used for unknown indication
     Route: 048
  13. NAVELBINE [Suspect]
     Active Substance: VINORELBINE TARTRATE
     Indication: Lung adenocarcinoma stage III
     Dosage: 20, 30 AND 80 MG , COURSE 1
     Route: 065
     Dates: start: 20231006
  14. NAVELBINE [Suspect]
     Active Substance: VINORELBINE TARTRATE
     Indication: Lung adenocarcinoma stage III
     Dosage: 20, 30 AND 80 MG , COURSE 2
     Route: 065
     Dates: start: 20231102
  15. AMLODIPINE BESYLATE [Concomitant]
     Active Substance: AMLODIPINE BESYLATE
     Indication: Product used for unknown indication
     Route: 048
     Dates: end: 20231212
  16. BETAPRED [Concomitant]
     Active Substance: BETAMETHASONE SODIUM PHOSPHATE
     Indication: Product used for unknown indication
     Dosage: TIME INTERVAL: TOTAL
     Route: 042
  17. REPAGLINIDE [Concomitant]
     Active Substance: REPAGLINIDE
     Indication: Product used for unknown indication
     Route: 048
  18. JARDIANCE [Concomitant]
     Active Substance: EMPAGLIFLOZIN
     Indication: Product used for unknown indication
     Route: 048
  19. KALIUMKLORID [Concomitant]
     Indication: Product used for unknown indication
     Route: 048
  20. ACETAMINOPHEN\CODEINE PHOSPHATE [Concomitant]
     Active Substance: ACETAMINOPHEN\CODEINE PHOSPHATE
     Indication: Product used for unknown indication
     Dosage: TIME INTERVAL: AS NECESSARY
     Route: 048
  21. CYANOCOBALAMIN [Concomitant]
     Active Substance: CYANOCOBALAMIN
     Indication: Product used for unknown indication
     Route: 048

REACTIONS (1)
  - Atrial fibrillation [Unknown]

NARRATIVE: CASE EVENT DATE: 20231211
